FAERS Safety Report 23601244 (Version 1)
Quarter: 2024Q1

REPORT INFORMATION
  Report Type: Spontaneous
  Country: AU (occurrence: AU)
  Receive Date: 20240306
  Receipt Date: 20240306
  Transmission Date: 20240410
  Serious: Yes (Other)
  Sender: FDA-Public Use
  Company Number: AU-002147023-NVSC2022AU216308

PATIENT
  Sex: Female

DRUGS (21)
  1. POSACONAZOLE [Suspect]
     Active Substance: POSACONAZOLE
     Indication: Product used for unknown indication
     Dosage: 300 MILLIGRAM
  2. CYCLOSPORINE [Suspect]
     Active Substance: CYCLOSPORINE
     Indication: Chronic graft versus host disease in skin
     Dosage: UNK
  3. CYCLOSPORINE [Suspect]
     Active Substance: CYCLOSPORINE
     Indication: Chronic graft versus host disease in eye
     Dosage: UNK
  4. CYCLOSPORINE [Suspect]
     Active Substance: CYCLOSPORINE
     Indication: Chronic graft versus host disease oral
     Dosage: UNK
  5. CYCLOSPORINE [Suspect]
     Active Substance: CYCLOSPORINE
     Indication: Chronic graft versus host disease in intestine
     Dosage: UNK
  6. CYCLOSPORINE [Suspect]
     Active Substance: CYCLOSPORINE
     Indication: Chronic graft versus host disease in lung
  7. MYCOPHENOLATE MOFETIL [Suspect]
     Active Substance: MYCOPHENOLATE MOFETIL
     Indication: Chronic graft versus host disease in skin
     Dosage: UNK
  8. MYCOPHENOLATE MOFETIL [Suspect]
     Active Substance: MYCOPHENOLATE MOFETIL
     Indication: Chronic graft versus host disease in eye
     Dosage: UNK
  9. MYCOPHENOLATE MOFETIL [Suspect]
     Active Substance: MYCOPHENOLATE MOFETIL
     Indication: Chronic graft versus host disease oral
     Dosage: UNK
  10. MYCOPHENOLATE MOFETIL [Suspect]
     Active Substance: MYCOPHENOLATE MOFETIL
     Indication: Chronic graft versus host disease in intestine
     Dosage: UNK
  11. MYCOPHENOLATE MOFETIL [Suspect]
     Active Substance: MYCOPHENOLATE MOFETIL
     Indication: Chronic graft versus host disease in lung
     Dosage: UNK
  12. PREDNISONE [Suspect]
     Active Substance: PREDNISONE
     Indication: Chronic graft versus host disease in eye
     Dosage: UNK
  13. PREDNISONE [Suspect]
     Active Substance: PREDNISONE
     Indication: Chronic graft versus host disease oral
     Dosage: UNK
  14. PREDNISONE [Suspect]
     Active Substance: PREDNISONE
     Indication: Chronic graft versus host disease in intestine
     Dosage: UNK
  15. PREDNISONE [Suspect]
     Active Substance: PREDNISONE
     Indication: Chronic graft versus host disease in lung
     Dosage: UNK
  16. PREDNISONE [Suspect]
     Active Substance: PREDNISONE
     Indication: Chronic graft versus host disease in skin
  17. TACROLIMUS [Suspect]
     Active Substance: TACROLIMUS
     Indication: Chronic graft versus host disease in skin
     Dosage: UNK
  18. TACROLIMUS [Suspect]
     Active Substance: TACROLIMUS
     Indication: Chronic graft versus host disease in eye
     Dosage: UNK
  19. TACROLIMUS [Suspect]
     Active Substance: TACROLIMUS
     Indication: Chronic graft versus host disease oral
     Dosage: UNK
  20. TACROLIMUS [Suspect]
     Active Substance: TACROLIMUS
     Indication: Chronic graft versus host disease in intestine
     Dosage: UNK
  21. TACROLIMUS [Suspect]
     Active Substance: TACROLIMUS
     Indication: Chronic graft versus host disease in lung

REACTIONS (9)
  - Chronic graft versus host disease in lung [Unknown]
  - Disease progression [Unknown]
  - Lung hyperinflation [Unknown]
  - Obstructive airways disorder [Unknown]
  - Product use in unapproved indication [Unknown]
  - Pulmonary function test decreased [Unknown]
  - Quality of life decreased [Unknown]
  - Therapeutic product effect incomplete [Unknown]
  - Weight decreased [Unknown]
